FAERS Safety Report 4357583-X (Version None)
Quarter: 2004Q2

REPORT INFORMATION
  Report Type: 
  Country: None (occurrence: None)
  Receive Date: 20040513
  Receipt Date: 20040409
  Transmission Date: 20050107
  Serious: No
  Sender: FDA-Public Use
  Company Number: US-BRISTOL-MYERS SQUIBB COMPANY-12556486

PATIENT
  Age: 24 Year
  Sex: Female

DRUGS (3)
  1. ABILIFY [Suspect]
     Indication: PARANOIA
     Route: 048
     Dates: start: 20040404, end: 20040408
  2. EFFEXOR XR [Concomitant]
  3. SEROQUEL [Concomitant]

REACTIONS (3)
  - HEADACHE [None]
  - HYPERSENSITIVITY [None]
  - TREMOR [None]
